FAERS Safety Report 4954489-X (Version None)
Quarter: 2006Q1

REPORT INFORMATION
  Report Type: 
  Country: None (occurrence: None)
  Receive Date: 20060322
  Receipt Date: 20060309
  Transmission Date: 20060701
  Serious: Yes (Other)
  Sender: FDA-Public Use
  Company Number: 2006019064

PATIENT
  Age: 77 Year
  Sex: Male
  Weight: 72 kg

DRUGS (5)
  1. AMLODIPINE [Suspect]
     Indication: CORONARY ANGIOPLASTY
     Dosage: 5 MG (DAILY), ORAL
     Route: 048
     Dates: start: 20050927, end: 20060131
  2. ROSUVASTATIN (ROSUVASTATIN) [Suspect]
     Indication: CORONARY ANGIOPLASTY
     Dosage: 10 MG (DAILY), ORAL
     Route: 048
     Dates: start: 20040521, end: 20060103
  3. CELECTOL [Concomitant]
  4. PLAVIX [Concomitant]
  5. ASPIRIN [Concomitant]

REACTIONS (7)
  - ALPHA 2 GLOBULIN INCREASED [None]
  - ARTHRALGIA [None]
  - C-REACTIVE PROTEIN INCREASED [None]
  - DIFFICULTY IN WALKING [None]
  - DRUG INTERACTION [None]
  - MYALGIA [None]
  - RED BLOOD CELL SEDIMENTATION RATE INCREASED [None]
